FAERS Safety Report 6879476-6 (Version None)
Quarter: 2010Q3

REPORT INFORMATION
  Report Type: 
  Country: None (occurrence: None)
  Receive Date: 20100728
  Receipt Date: 20100720
  Transmission Date: 20110219
  Serious: Yes (Hospitalization)
  Sender: FDA-Public Use
  Company Number: GXKR2010GB08092

PATIENT
  Age: 80 Year
  Sex: Female

DRUGS (10)
  1. WARFARIN SODIUM [Suspect]
     Dosage: UNK
     Route: 048
     Dates: start: 20070101, end: 20100630
  2. AMIODARONE HYDROCHLORIDE [Concomitant]
  3. CEPHALEXIN [Concomitant]
     Indication: URINARY TRACT INFECTION
     Dosage: UNK
     Dates: start: 20100601
  4. CIPROFLOXACIN [Concomitant]
     Indication: URINARY TRACT INFECTION
     Dosage: UNK
     Dates: start: 20100601
  5. DIGOXIN [Concomitant]
  6. LACRI-LUBE [Concomitant]
  7. LEVOTHYROXINE SODIUM [Concomitant]
  8. MOVELAT [Concomitant]
  9. OMEPRAZOLE [Concomitant]
  10. ALBUTEROL [Concomitant]

REACTIONS (3)
  - ANAEMIA [None]
  - DYSPNOEA [None]
  - FATIGUE [None]
